FAERS Safety Report 9313974 (Version 1)
Quarter: 2013Q2

REPORT INFORMATION
  Report Type: Spontaneous
  Country: US (occurrence: None)
  Receive Date: 20130524
  Receipt Date: 20130524
  Transmission Date: 20140414
  Serious: Yes (Hospitalization)
  Sender: FDA-Public Use
  Company Number: None

PATIENT
  Age: 54 Year
  Sex: Male
  Weight: 92.9 kg

DRUGS (4)
  1. INCIVEK [Suspect]
     Route: 048
     Dates: start: 20130325
  2. PEGASYS [Suspect]
     Dosage: 180MCG/600MG QWEEK/BID SC/ORAL
  3. AMOXICILLIN [Concomitant]
  4. CLINDAMYCIN [Concomitant]

REACTIONS (4)
  - Postoperative fever [None]
  - Gingival bleeding [None]
  - Haemorrhagic anaemia [None]
  - Infection [None]
